FAERS Safety Report 19138576 (Version 8)
Quarter: 2022Q2

REPORT INFORMATION
  Report Type: Report from Study
  Country: US (occurrence: US)
  Receive Date: 20210415
  Receipt Date: 20220404
  Transmission Date: 20220721
  Serious: Yes (Other)
  Sender: FDA-Public Use
  Company Number: NVSC2021US081122

PATIENT
  Sex: Male

DRUGS (1)
  1. ENTRESTO [Suspect]
     Active Substance: SACUBITRIL\VALSARTAN
     Indication: Cardiac failure
     Dosage: 1 DOSAGE FORM, BID (97.103 MG)
     Route: 065
     Dates: start: 20210315

REACTIONS (7)
  - Prostate cancer [Unknown]
  - Pleural effusion [Recovered/Resolved]
  - Fatigue [Recovered/Resolved]
  - Dyspnoea exertional [Recovered/Resolved]
  - Weight decreased [Recovering/Resolving]
  - Weight fluctuation [Unknown]
  - Stress [Unknown]

NARRATIVE: CASE EVENT DATE: 20210101
